FAERS Safety Report 9377548 (Version 3)
Quarter: 2020Q3

REPORT INFORMATION
  Report Type: Spontaneous
  Country: KR (occurrence: KR)
  Receive Date: 20130701
  Receipt Date: 20200722
  Transmission Date: 20201103
  Serious: Yes (Death, Hospitalization, Other)
  Sender: FDA-Public Use
  Company Number: KR-ELI_LILLY_AND_COMPANY-KR201306008015

PATIENT
  Age: 86 Year
  Sex: Female
  Weight: 48 kg

DRUGS (5)
  1. ACLOFEN [Concomitant]
     Dosage: 100 MG, BID
  2. FORSTEO [Suspect]
     Active Substance: TERIPARATIDE
     Indication: OSTEOPOROSIS
     Dosage: 20 UG, QD
     Route: 058
     Dates: start: 20130622, end: 20130622
  3. FORSTEO [Suspect]
     Active Substance: TERIPARATIDE
     Dosage: 600 UNK
  4. ALBIS [RANITIDINE HYDROCHLORIDE;SUCRALFATE;TR [Concomitant]
     Indication: ANTACID THERAPY
     Dosage: UNK, UNKNOWN
     Route: 065
  5. TARGIN [Concomitant]
     Active Substance: NALOXONE HYDROCHLORIDE\OXYCODONE HYDROCHLORIDE
     Indication: PAIN
     Dosage: UNK, UNKNOWN
     Route: 065

REACTIONS (4)
  - Arrhythmia [Not Recovered/Not Resolved]
  - Dyspnoea [Not Recovered/Not Resolved]
  - Anaphylactic shock [Fatal]
  - Coma [Not Recovered/Not Resolved]

NARRATIVE: CASE EVENT DATE: 20130622
